FAERS Safety Report 25673343 (Version 1)
Quarter: 2025Q3

REPORT INFORMATION
  Report Type: Spontaneous
  Country: CH (occurrence: CH)
  Receive Date: 20250813
  Receipt Date: 20250813
  Transmission Date: 20251021
  Serious: Yes (Other)
  Sender: GLAXOSMITHKLINE
  Company Number: CH-GLAXOSMITHKLINE INC-CH2025097531

PATIENT
  Sex: Female

DRUGS (1)
  1. NUCALA [Suspect]
     Active Substance: MEPOLIZUMAB
     Indication: Hypereosinophilic syndrome

REACTIONS (1)
  - Thrombocytopenia [Recovered/Resolved]
